FAERS Safety Report 12707981 (Version 1)
Quarter: 2016Q3

REPORT INFORMATION
  Report Type: Spontaneous
  Country: US (occurrence: US)
  Receive Date: 20160901
  Receipt Date: 20160901
  Transmission Date: 20161109
  Serious: No
  Sender: FDA-Public Use
  Company Number: US-PFIZER INC-2016396402

PATIENT

DRUGS (1)
  1. PROCARDIA XL [Suspect]
     Active Substance: NIFEDIPINE
     Dosage: 90 MG, UNK

REACTIONS (1)
  - Constipation [Unknown]
